FAERS Safety Report 17637044 (Version 1)
Quarter: 2020Q2

REPORT INFORMATION
  Report Type: Spontaneous
  Country: US (occurrence: US)
  Receive Date: 20200406
  Receipt Date: 20200406
  Transmission Date: 20200713
  Serious: No
  Sender: FDA-Public Use
  Company Number: None

PATIENT
  Age: 61 Year
  Sex: Female

DRUGS (3)
  1. OMEPRAZOLE. [Concomitant]
     Active Substance: OMEPRAZOLE
  2. HYDROXYCHLOROQUIN [Concomitant]
     Active Substance: HYDROXYCHLOROQUINE SULFATE
  3. ENBREL [Suspect]
     Active Substance: ETANERCEPT
     Dosage: OTHER
     Route: 058
     Dates: start: 201801

REACTIONS (1)
  - Alopecia [None]

NARRATIVE: CASE EVENT DATE: 20200406
